FAERS Safety Report 25730361 (Version 2)
Quarter: 2025Q4

REPORT INFORMATION
  Report Type: Spontaneous
  Country: EU (occurrence: EU)
  Receive Date: 20250827
  Receipt Date: 20251001
  Transmission Date: 20260118
  Serious: Yes (Life-Threatening, Hospitalization, Other)
  Sender: NOVARTIS
  Company Number: None

PATIENT
  Age: 15 Year
  Sex: Male
  Weight: 62 kg

DRUGS (4)
  1. CARBAMAZEPINE [Suspect]
     Active Substance: CARBAMAZEPINE
     Indication: Epilepsy
     Dosage: 1000 MG, QD, (RETARD), DAILY DOSE: 1000 MG EVERY 1 DAY
     Route: 048
     Dates: start: 20250710, end: 20250803
  2. VALPROATE SODIUM [Concomitant]
     Active Substance: VALPROATE SODIUM
     Indication: Epilepsy
     Dosage: 1450 MG, QD, (BEREITS L?NGERE DAUERMEDIKATION)
     Route: 048
  3. METHYLPHENIDATE [Concomitant]
     Active Substance: METHYLPHENIDATE
     Indication: Attention deficit hyperactivity disorder
     Dosage: 40 MG, QD, (RETARED)
     Route: 048
     Dates: start: 20250708
  4. MELATONIN [Concomitant]
     Active Substance: MELATONIN
     Indication: Product used for unknown indication
     Dosage: 2 MG, QD, (0-0-0-2 MG)
     Route: 065

REACTIONS (14)
  - Drug reaction with eosinophilia and systemic symptoms [Not Recovered/Not Resolved]
  - Hypotension [Not Recovered/Not Resolved]
  - Hyponatraemia [Not Recovered/Not Resolved]
  - Urticaria [Not Recovered/Not Resolved]
  - Pyrexia [Not Recovered/Not Resolved]
  - Hypertension [Not Recovered/Not Resolved]
  - Disseminated intravascular coagulation [Not Recovered/Not Resolved]
  - Flushing [Not Recovered/Not Resolved]
  - Splenomegaly [Unknown]
  - Increased need for sleep [Unknown]
  - Fatigue [Unknown]
  - Sluggishness [Unknown]
  - Nausea [Unknown]
  - Groin pain [Unknown]

NARRATIVE: CASE EVENT DATE: 20250101
